FAERS Safety Report 4855432-4 (Version None)
Quarter: 2005Q4

REPORT INFORMATION
  Report Type: 
  Country: None (occurrence: None)
  Receive Date: 20051125
  Receipt Date: 20050215
  Transmission Date: 20060501
  Serious: Yes (Hospitalization)
  Sender: FDA-Public Use
  Company Number: 800285

PATIENT
  Age: 54 Year
  Sex: Male
  Weight: 235.8 kg

DRUGS (15)
  1. DIANEAL [Suspect]
     Indication: PERITONEAL DIALYSIS
  2. ASPIRIN [Concomitant]
  3. ATENOLOL [Concomitant]
  4. FERROUS SULFATE TAB [Concomitant]
  5. FOLIC ACID [Concomitant]
  6. LIPITOR [Concomitant]
  7. LISINOPRIL [Concomitant]
  8. NEPHRO CAPS [Concomitant]
  9. NIASPAN [Concomitant]
  10. PHOSLO [Concomitant]
  11. ROCALTROL [Concomitant]
  12. SODIUM BICARBONATE [Concomitant]
  13. TRICOR [Concomitant]
  14. ZETIA [Concomitant]
  15. DIANEAL [Concomitant]

REACTIONS (3)
  - BACILLUS INFECTION [None]
  - BACTERIAL INFECTION [None]
  - PERITONITIS BACTERIAL [None]
